FAERS Safety Report 8938927 (Version 2)
Quarter: 2013Q1

REPORT INFORMATION
  Report Type: Spontaneous
  Country: FR (occurrence: FR)
  Receive Date: 20121203
  Receipt Date: 20130121
  Transmission Date: 20140127
  Serious: Yes (Hospitalization)
  Sender: FDA-Public Use
  Company Number: FR-JNJFOC-20121111588

PATIENT
  Age: 16 Year
  Sex: Female

DRUGS (2)
  1. REMICADE [Suspect]
     Indication: ANKYLOSING SPONDYLITIS
     Dosage: DURATION: 3 YEARS
     Route: 042
     Dates: start: 2009, end: 20120911
  2. METHOTREXATE [Suspect]
     Indication: ANKYLOSING SPONDYLITIS
     Dosage: DURATION: 5 YEARS
     Route: 048
     Dates: start: 2007, end: 20120929

REACTIONS (2)
  - Erythema multiforme [Recovered/Resolved]
  - Toxic skin eruption [Unknown]
